FAERS Safety Report 19460191 (Version 1)
Quarter: 2021Q2

REPORT INFORMATION
  Report Type: Spontaneous
  Country: US (occurrence: US)
  Receive Date: 20210625
  Receipt Date: 20210625
  Transmission Date: 20210717
  Serious: Yes (Death, Other)
  Sender: FDA-Public Use
  Company Number: US-SHILPA MEDICARE LIMITED-SML-US-2021-00789

PATIENT

DRUGS (9)
  1. BUSULFAN, UNKNOWN [Suspect]
     Active Substance: BUSULFAN
     Indication: WISKOTT-ALDRICH SYNDROME
     Dosage: OVER 4 DAYS (DAYS ?5 TO ?2; AUC OF 60 TO 63 MG/L X H)
     Route: 065
  2. ALEMTUZUMAB [Suspect]
     Active Substance: ALEMTUZUMAB
     Indication: HAEMOPHAGOCYTIC LYMPHOHISTIOCYTOSIS
  3. ALEMTUZUMAB [Suspect]
     Active Substance: ALEMTUZUMAB
     Indication: WISKOTT-ALDRICH SYNDROME
     Dosage: ON DAYS ?8 TO ?6 OR ON DAYS ?9 TO ?6
     Route: 065
  4. ABATACEPT [Suspect]
     Active Substance: ABATACEPT
     Indication: GRAFT VERSUS HOST DISEASE
     Dosage: ON DAYS 1, 5, 14, AND 28.
     Route: 065
  5. FLUDARABINE [Suspect]
     Active Substance: FLUDARABINE PHOSPHATE
     Indication: WISKOTT-ALDRICH SYNDROME
     Dosage: 160 TO 180 MG/M 2 OVER 4 TO 6 DAYS (ON DAYS ?8 TO ?3 OR ON DAYS ?6 TO ?3).
     Route: 065
  6. CYCLOSPORINE. [Suspect]
     Active Substance: CYCLOSPORINE
     Indication: GRAFT VERSUS HOST DISEASE
     Dosage: INITIATED ON DAY 3, TILL DAY 21
     Route: 065
  7. FLUDARABINE [Suspect]
     Active Substance: FLUDARABINE PHOSPHATE
     Indication: HAEMOPHAGOCYTIC LYMPHOHISTIOCYTOSIS
  8. MYCOPHENOLATE MOFETIL. [Suspect]
     Active Substance: MYCOPHENOLATE MOFETIL
     Indication: GRAFT VERSUS HOST DISEASE
     Dosage: INITIATED ON DAY 0, TILL DAY 21
     Route: 065
  9. BUSULFAN, UNKNOWN [Suspect]
     Active Substance: BUSULFAN
     Indication: HAEMOPHAGOCYTIC LYMPHOHISTIOCYTOSIS

REACTIONS (7)
  - Graft versus host disease [Fatal]
  - Guillain-Barre syndrome [Unknown]
  - Cytomegalovirus infection [Unknown]
  - Immune thrombocytopenia [Unknown]
  - Obliterative bronchiolitis [Fatal]
  - Epstein-Barr viraemia [Unknown]
  - Norovirus infection [Unknown]
